FAERS Safety Report 7968802-2 (Version None)
Quarter: 2011Q4

REPORT INFORMATION
  Report Type: 
  Country: None (occurrence: None)
  Receive Date: 20111208
  Receipt Date: 20111123
  Transmission Date: 20120403
  Serious: Yes (Death, Hospitalization)
  Sender: FDA-Public Use
  Company Number: 2011CP000179

PATIENT
  Age: 65 Year
  Sex: Male

DRUGS (12)
  1. ACETAMINOPHEN [Suspect]
     Indication: PROPHYLAXIS
     Dosage: 400 ML;3 TIMES;IV
     Route: 042
     Dates: start: 20041209, end: 20041214
  2. TRAMADOL HCL [Concomitant]
  3. FENTANYL [Concomitant]
  4. PROPOFOL [Concomitant]
  5. MORHINE [Concomitant]
  6. KETOGAN NOVUM [Concomitant]
  7. SEVOFLURANE [Suspect]
     Dosage: INH
     Route: 055
     Dates: start: 20041214, end: 20041201
  8. ACETAMINOPHEN [Suspect]
     Dosage: 40 MG
     Dates: start: 20041211, end: 20041214
  9. SOLU-CORTEF [Concomitant]
  10. FRAGMIN [Concomitant]
  11. BETAPRED [Concomitant]
  12. CLOXACILLIN SODIUM [Concomitant]

REACTIONS (11)
  - HEPATIC FAILURE [None]
  - PNEUMONIA [None]
  - DIALYSIS [None]
  - TOXICITY TO VARIOUS AGENTS [None]
  - RENAL FAILURE ACUTE [None]
  - CIRCULATORY COLLAPSE [None]
  - RHABDOMYOLYSIS [None]
  - ACUTE RESPIRATORY DISTRESS SYNDROME [None]
  - HYPOTENSION [None]
  - SEPSIS [None]
  - COAGULOPATHY [None]
